FAERS Safety Report 7431990-0 (Version None)
Quarter: 2011Q2

REPORT INFORMATION
  Report Type: 
  Country: None (occurrence: None)
  Receive Date: 20110422
  Receipt Date: 20110415
  Transmission Date: 20111010
  Serious: No
  Sender: FDA-Public Use
  Company Number: US-B.I. PHARMACEUTICALS,INC./RIDGEFIELD-2011-BP-03549BP

PATIENT
  Sex: Female

DRUGS (9)
  1. SOTALOL HCL [Suspect]
     Indication: ATRIAL FIBRILLATION
     Dosage: 240 MG
     Route: 048
  2. BONIVA [Concomitant]
     Indication: OSTEOPOROSIS
     Dosage: 150 MG
     Route: 048
  3. PRADAXA [Suspect]
     Indication: ANTICOAGULANT THERAPY
  4. CRESTOR [Concomitant]
     Indication: BLOOD CHOLESTEROL INCREASED
     Dosage: 5 MG
     Route: 048
  5. PRADAXA [Suspect]
     Indication: ATRIAL FIBRILLATION
     Dosage: 300 MG
     Route: 048
     Dates: start: 20110124
  6. ACIPHEX [Concomitant]
     Indication: GASTROOESOPHAGEAL REFLUX DISEASE
     Dosage: 20 MG
     Route: 048
  7. CARDIZEM [Concomitant]
     Dosage: 120 MG
     Route: 048
  8. NITROFUR MAC [Concomitant]
     Indication: CYSTITIS
     Dosage: 50 MG
     Route: 048
  9. BIOTIN [Concomitant]
     Indication: PROPHYLAXIS
     Dosage: 1000 MCG
     Route: 048

REACTIONS (5)
  - NAUSEA [None]
  - LARGE INTESTINAL HAEMORRHAGE [None]
  - SYNCOPE [None]
  - RECTAL HAEMORRHAGE [None]
  - DIZZINESS [None]
